FAERS Safety Report 17653168 (Version 1)
Quarter: 2020Q2

REPORT INFORMATION
  Report Type: Spontaneous
  Country: IT (occurrence: IT)
  Receive Date: 20200410
  Receipt Date: 20200410
  Transmission Date: 20200713
  Serious: Yes (Other)
  Sender: FDA-Public Use
  Company Number: IT-SUN PHARMACEUTICAL INDUSTRIES LTD-2020RR-243433

PATIENT
  Age: 26 Year
  Sex: Male

DRUGS (2)
  1. PAROXETINE. [Suspect]
     Active Substance: PAROXETINE
     Indication: ERECTILE DYSFUNCTION
  2. PAROXETINE. [Suspect]
     Active Substance: PAROXETINE
     Indication: PREMATURE EJACULATION
     Dosage: UNK
     Route: 065

REACTIONS (1)
  - Off label use [Unknown]
